FAERS Safety Report 9204372 (Version 1)
Quarter: 2013Q1

REPORT INFORMATION
  Report Type: Spontaneous
  Country: US (occurrence: None)
  Receive Date: 20120709
  Receipt Date: 20120709
  Transmission Date: 20140127
  Serious: Yes (Other)
  Sender: FDA-Public Use
  Company Number: PHEH2011US02619

PATIENT
  Age: 86 Year
  Sex: Male

DRUGS (1)
  1. GLEEVEC [Suspect]
     Indication: GASTRIC CANCER
     Route: 048
     Dates: end: 201108

REACTIONS (3)
  - Conjunctivitis [None]
  - Eye swelling [None]
  - Eye discharge [None]
